FAERS Safety Report 9432276 (Version 1)
Quarter: 2013Q3

REPORT INFORMATION
  Report Type: Spontaneous
  Country: US (occurrence: US)
  Receive Date: 20130731
  Receipt Date: 20130731
  Transmission Date: 20140515
  Serious: Yes (Other)
  Sender: FDA-Public Use
  Company Number: CHPA2013US011715

PATIENT
  Age: 54 Year
  Sex: Female

DRUGS (6)
  1. EXCEDRIN MIGRAINE [Suspect]
     Indication: MIGRAINE
     Dosage: UNK, UNK
     Route: 048
  2. MOTRIN [Concomitant]
     Indication: PAIN
     Dosage: UNK, PRN
     Dates: start: 2004
  3. DILANTIN//PHENYTOIN [Concomitant]
     Indication: EPILEPSY
     Dosage: UNK
     Dates: start: 1983
  4. VICODIN [Concomitant]
  5. TYLENOL W/CODEINE [Concomitant]
     Indication: PAIN
     Dosage: UNK, PRN
  6. VOLTAREN ^NOVARTIS^ [Concomitant]
     Indication: ARTHRITIS
     Dosage: 4 G, 3 TO 4 TIMES A DAY
     Route: 061
     Dates: start: 20130701

REACTIONS (4)
  - Hypertension [Recovered/Resolved]
  - Malaise [Recovered/Resolved]
  - Tremor [Recovered/Resolved]
  - Nausea [Recovered/Resolved]
